FAERS Safety Report 22339159 (Version 1)
Quarter: 2023Q2

REPORT INFORMATION
  Report Type: Report from Study
  Country: US (occurrence: None)
  Receive Date: 20230518
  Receipt Date: 20230518
  Transmission Date: 20230722
  Serious: Yes (Other)
  Sender: FDA-Public Use
  Company Number: US-ROCHE-3349642

PATIENT

DRUGS (8)
  1. RITUXIMAB [Suspect]
     Active Substance: RITUXIMAB
     Indication: Burkitt^s lymphoma
     Dosage: SUBSEQUENT DOSES OF RITUXIMAB WAS RECEIVED ON 12/NOV/2016, 01/DEC/2016, 23/DEC/2016, 13/JAN/2017, 03
     Route: 041
     Dates: start: 20161011
  2. VINCRISTINE [Suspect]
     Active Substance: VINCRISTINE
     Indication: Burkitt^s lymphoma
     Dosage: SUB SEQUENT DOSE OF VINCRISTINE WAS RECEIVED ON 12/NOV/2016, 01/DEC/2016, 23/DEC/2016, 13/JAN/2017,
     Route: 065
     Dates: start: 20161011, end: 20170206
  3. PREDNISONE [Suspect]
     Active Substance: PREDNISONE
     Indication: Burkitt^s lymphoma
     Dosage: SUBSEQUENT DOSE OF PREDISONE WAS RECEIVED ON  12/NOV/2016 (120 MG), 23/DEC/2016 (50 MG), 13/JAN/2017
     Route: 065
     Dates: start: 20161011
  4. METHOTREXATE [Suspect]
     Active Substance: METHOTREXATE
     Indication: Burkitt^s lymphoma
     Dosage: SUBSEQUENT DOSES OF METHOTREXATE WAS RECEIVED ON 13/OCT/2016, 17/NOV/2016, 23/NOV/2016, 01/DEC/2016,
     Route: 065
     Dates: start: 20161017
  5. FILGRASTIM [Suspect]
     Active Substance: FILGRASTIM
     Indication: Burkitt^s lymphoma
     Route: 065
     Dates: start: 20161016, end: 20161025
  6. ETOPOSIDE [Suspect]
     Active Substance: ETOPOSIDE
     Indication: Burkitt^s lymphoma
     Dosage: SUBSEQUENT DOSE OF ETOPOSIDE WAS RECEIVED ON 12/NOV/2016, 01/DEC/2016, 23/DEC/2016, 13/JAN/2017, 03/
     Route: 065
     Dates: start: 20161011
  7. DOXORUBICIN [Suspect]
     Active Substance: DOXORUBICIN
     Indication: Burkitt^s lymphoma
     Dosage: SUBSEQUENT DOSE OF DOXORUBICIN WAS RECEIVED ON 26/DEC/2016, 13/JAN/2017, 03/FEB/2017
     Route: 065
     Dates: start: 20161015
  8. CYCLOPHOSPHAMIDE [Suspect]
     Active Substance: CYCLOPHOSPHAMIDE
     Indication: Burkitt^s lymphoma
     Dosage: SUBSEQUENT DOSES CYCLOPHOSPHAMIDE WAS RECEIVED ON 16/NOV/2016, 05/DEC/2016, 17/JAN/2017, 07/FEB/2017
     Route: 065
     Dates: start: 20161015

REACTIONS (4)
  - Pneumonia [Recovered/Resolved]
  - Restrictive cardiomyopathy [Recovered/Resolved]
  - Ejection fraction decreased [Recovered/Resolved]
  - Febrile neutropenia [Recovered/Resolved]

NARRATIVE: CASE EVENT DATE: 20161020
